FAERS Safety Report 7551214-3 (Version None)
Quarter: 2011Q2

REPORT INFORMATION
  Report Type: 
  Country: None (occurrence: None)
  Receive Date: 20110616
  Receipt Date: 20110603
  Transmission Date: 20111010
  Serious: Yes (Hospitalization, Other)
  Sender: FDA-Public Use
  Company Number: PHHY2010JP88944

PATIENT
  Age: 75 Year
  Sex: Female
  Weight: 45 kg

DRUGS (8)
  1. FUROSEMIDE [Concomitant]
     Dosage: 20 MG, UNK
     Dates: start: 20100906
  2. AFINITOR [Suspect]
     Indication: METASTATIC RENAL CELL CARCINOMA
     Dosage: 5 MG, QD
     Route: 048
     Dates: start: 20100826, end: 20101125
  3. AFINITOR [Suspect]
     Dosage: 5 MG, QD
     Route: 048
     Dates: start: 20101206, end: 20101218
  4. SUNITINIB MALATE [Concomitant]
     Indication: METASTATIC RENAL CELL CARCINOMA
     Dosage: 25 MG, UNK
     Route: 048
     Dates: start: 20090226, end: 20100810
  5. ZETIA [Concomitant]
     Dosage: 10 MG, UNK
     Route: 048
     Dates: start: 20070910
  6. URSO 250 [Concomitant]
     Dosage: 100 MG, UNK
     Route: 048
     Dates: start: 20050328
  7. MAGNESIUM SULFATE [Concomitant]
     Dosage: 990 MG, UNK
     Route: 048
     Dates: start: 20091202
  8. ALLOPURINOL [Concomitant]
     Dosage: 100 MG, UNK
     Route: 048
     Dates: start: 20091125

REACTIONS (6)
  - ANAEMIA [None]
  - NEPHROPATHY [None]
  - STOMATITIS [None]
  - NAUSEA [None]
  - HAEMOGLOBIN DECREASED [None]
  - GENERAL PHYSICAL HEALTH DETERIORATION [None]
